FAERS Safety Report 10557120 (Version 1)
Quarter: 2014Q4

REPORT INFORMATION
  Report Type: Spontaneous
  Country: US (occurrence: None)
  Receive Date: 20141030
  Receipt Date: 20141030
  Transmission Date: 20150529
  Serious: No
  Sender: FDA-Public Use
  Company Number: None

PATIENT
  Age: 67 Year
  Sex: Female
  Weight: 68.04 kg

DRUGS (10)
  1. VIIBRYD [Suspect]
     Active Substance: VILAZODONE HYDROCHLORIDE
     Indication: ANXIETY
     Dosage: 40 MG?1 TABLET ONCE A DAY?ONCE A DAY?BY MOUTH?THERAPY7?BUILD UP DOSE PKG 10/20MG 40MG 1 MONTH
     Route: 048
     Dates: end: 20141001
  2. CHLORPROMAZINE [Concomitant]
     Active Substance: CHLORPROMAZINE
  3. PROPRANOLOL ER [Concomitant]
  4. LYRICA [Concomitant]
     Active Substance: PREGABALIN
  5. TRAMADOL [Concomitant]
     Active Substance: TRAMADOL
  6. VIIBRYD [Suspect]
     Active Substance: VILAZODONE HYDROCHLORIDE
     Indication: DEPRESSION
     Dosage: 40 MG?1 TABLET ONCE A DAY?ONCE A DAY?BY MOUTH?THERAPY7?BUILD UP DOSE PKG 10/20MG 40MG 1 MONTH
     Route: 048
     Dates: end: 20141001
  7. OMEGA III [Concomitant]
  8. LITHIUM [Concomitant]
     Active Substance: LITHIUM CARBONATE
  9. CLONAZEPAM. [Concomitant]
     Active Substance: CLONAZEPAM
  10. VITAMIN D [Concomitant]
     Active Substance: CHOLECALCIFEROL

REACTIONS (1)
  - Migraine [None]

NARRATIVE: CASE EVENT DATE: 20140917
